FAERS Safety Report 5108946-6 (Version None)
Quarter: 2006Q3

REPORT INFORMATION
  Report Type: 
  Country: None (occurrence: None)
  Receive Date: 20060915
  Receipt Date: 20060915
  Transmission Date: 20061208
  Serious: Yes (Hospitalization)
  Sender: FDA-Public Use
  Company Number: None

PATIENT
  Age: 65 Year
  Sex: Male

DRUGS (7)
  1. ADVICOR [Suspect]
     Indication: HYPERLIPIDAEMIA
     Dosage: 2000 PO
     Route: 048
  2. FOSINOPRIL SODIUM [Concomitant]
  3. HYDROCHLOROTHIAZIDE [Concomitant]
  4. SODIUM CHLORIDE 0.9% [Concomitant]
  5. REGULAR INSULIN [Concomitant]
  6. MORPHINE SUL [Concomitant]
  7. METOCLOPRAM [Concomitant]

REACTIONS (1)
  - HEPATITIS [None]
